FAERS Safety Report 6825416-5 (Version None)
Quarter: 2010Q3

REPORT INFORMATION
  Report Type: 
  Country: None (occurrence: None)
  Receive Date: 20100708
  Receipt Date: 20061221
  Transmission Date: 20110219
  Serious: No
  Sender: FDA-Public Use
  Company Number: US-PFIZER INC-2007001182

PATIENT
  Sex: Male

DRUGS (1)
  1. CHANTIX [Suspect]

REACTIONS (6)
  - BLOOD GLUCOSE ABNORMAL [None]
  - DRY MOUTH [None]
  - POLYDIPSIA [None]
  - THIRST [None]
  - VISUAL IMPAIRMENT [None]
  - WEIGHT DECREASED [None]
